FAERS Safety Report 8284787-6 (Version None)
Quarter: 2012Q2

REPORT INFORMATION
  Report Type: 
  Country: None (occurrence: None)
  Receive Date: 20120413
  Receipt Date: 20110418
  Transmission Date: 20120825
  Serious: No
  Sender: FDA-Public Use
  Company Number: US-ASTRAZENECA-2011SE22626

PATIENT
  Age: 49 Year
  Sex: Female
  Weight: 81.6 kg

DRUGS (5)
  1. NEXIUM [Suspect]
     Indication: GASTROOESOPHAGEAL REFLUX DISEASE
     Route: 048
     Dates: start: 20080101, end: 20110101
  2. PAXIL [Concomitant]
     Indication: DEPRESSION
  3. ESTROGEN [Concomitant]
  4. PROGESTERONE [Concomitant]
  5. CALCIUM CARBONATE [Concomitant]

REACTIONS (5)
  - OSTEOPENIA [None]
  - ARTHRALGIA [None]
  - DEPRESSION [None]
  - MYALGIA [None]
  - WEIGHT INCREASED [None]
